FAERS Safety Report 8871027 (Version 1)
Quarter: 2012Q4

REPORT INFORMATION
  Report Type: 
  Country: US (occurrence: US)
  Receive Date: 20121029
  Receipt Date: 20121029
  Transmission Date: 20130627
  Serious: Yes (Death, Other)
  Sender: FDA-Public Use
  Company Number: PHHY2012US095863

PATIENT
  Age: 26 Year
  Sex: Male

DRUGS (7)
  1. INTERLEUKIN-2/DIPTHERIA TOXIN FUSION PROTEIN [Suspect]
     Dosage: 4.5 x 10^6 IU /m 2/ day
     Route: 042
  2. INTERLEUKIN-2/DIPTHERIA TOXIN FUSION PROTEIN [Suspect]
     Dosage: 7.5 x 10^6 IU three times per week
  3. CICLOSPORIN [Suspect]
     Indication: TRANSPLANT
     Dosage: 1 mg/kg, over 4 hours
  4. VP-16 [Concomitant]
     Dosage: 100 mg/m2, m2over 60 minutes on the first day
  5. GM-CSF [Concomitant]
     Dosage: 500 ug, once daily for 6 days
     Route: 058
  6. IRRADIATION [Concomitant]
  7. RADIOTHERAPY [Concomitant]

REACTIONS (10)
  - Neoplasm progression [Fatal]
  - Type IV hypersensitivity reaction [Unknown]
  - Accident [Unknown]
  - Chest pain [Not Recovered/Not Resolved]
  - Dyspnoea [Not Recovered/Not Resolved]
  - Nausea [Not Recovered/Not Resolved]
  - Fatigue [Not Recovered/Not Resolved]
  - Injection site inflammation [Unknown]
  - Myalgia [Recovering/Resolving]
  - Pain [Recovering/Resolving]
